FAERS Safety Report 8278209 (Version 3)
Quarter: 2012Q4

REPORT INFORMATION
  Report Type: Report from Study
  Country: DE (occurrence: DE)
  Receive Date: 20111207
  Receipt Date: 20121205
  Transmission Date: 20130627
  Serious: Yes (Hospitalization)
  Sender: FDA-Public Use
  Company Number: PHHO2011DE16693

PATIENT
  Age: 28 Year
  Sex: Male
  Weight: 112 kg

DRUGS (6)
  1. BLINDED AFINITOR [Suspect]
     Indication: ANGIOMYOLIPOMA
     Dosage: code not broken
     Route: 048
     Dates: start: 20111012
  2. BLINDED NO TREATMENT RECEIVED [Suspect]
     Indication: ANGIOMYOLIPOMA
     Dosage: code not broken
     Route: 048
     Dates: start: 20111012
  3. BLINDED PLACEBO [Suspect]
     Indication: ANGIOMYOLIPOMA
     Dosage: code not broken
     Route: 048
     Dates: start: 20111012
  4. BLINDED AFINITOR [Suspect]
     Dosage: Code not broken
     Route: 048
     Dates: start: 20090628, end: 20110928
  5. BLINDED NO TREATMENT RECEIVED [Suspect]
     Dosage: Code not broken
     Route: 048
     Dates: start: 20090628, end: 20110928
  6. BLINDED PLACEBO [Suspect]
     Dosage: Code not broken
     Route: 048
     Dates: start: 20090628, end: 20110928

REACTIONS (1)
  - Abscess [Recovered/Resolved]
